FAERS Safety Report 17829764 (Version 1)
Quarter: 2020Q2

REPORT INFORMATION
  Report Type: Spontaneous
  Country: US (occurrence: US)
  Receive Date: 20200527
  Receipt Date: 20200527
  Transmission Date: 20200714
  Serious: No
  Sender: FDA-Public Use
  Company Number: None

PATIENT
  Age: 46 Year
  Sex: Male
  Weight: 102 kg

DRUGS (18)
  1. LORAZEPAM 2 MG INJECTION [Concomitant]
     Dates: start: 20200516, end: 20200516
  2. POTASSIUM CHLORIDE INJECTION [Concomitant]
     Active Substance: POTASSIUM CHLORIDE
     Dates: start: 20200522, end: 20200524
  3. REMDESIVIR INJECTION [Suspect]
     Active Substance: REMDESIVIR
     Indication: COVID-19
     Dosage: ?          OTHER FREQUENCY:ONCE;?
     Route: 042
     Dates: start: 20200516, end: 20200516
  4. REMDESIVIR. [Suspect]
     Active Substance: REMDESIVIR
     Indication: COVID-19
     Route: 042
  5. ENOXAPARIN 100 MG INJECTION [Concomitant]
     Dates: start: 20200517
  6. FUROSEMIDE 40 MG INJECTION [Concomitant]
     Dates: start: 20200523, end: 20200523
  7. HYDROMORPHONE 1 MG INJECTION [Concomitant]
     Dates: start: 20200516
  8. PANTOPRAZOLE 40 MG INJECTION [Concomitant]
     Dates: start: 20200516
  9. VECURONIUM INJECTION [Concomitant]
     Dates: start: 20200517, end: 20200521
  10. ACETAMINOPHEN TABLET [Concomitant]
     Active Substance: ACETAMINOPHEN
     Dates: start: 20200516
  11. ATORVASTATIN 40 MG TABLET [Concomitant]
     Active Substance: ATORVASTATIN
     Dates: start: 20200513, end: 20200523
  12. CEFTRIAXONE 1 GM INJECTION [Concomitant]
     Dates: start: 20200512, end: 20200517
  13. TOPIRAMATE 100 MG TABLET [Concomitant]
     Active Substance: TOPIRAMATE
     Dates: start: 20200517
  14. SODIUM BICARBONATE INJECTION [Concomitant]
     Active Substance: SODIUM BICARBONATE
     Dates: start: 20200518, end: 20200522
  15. HYDROXYCHLOROQUINE 200 MG TABLET [Concomitant]
     Active Substance: HYDROXYCHLOROQUINE
     Dates: start: 20200512, end: 20200517
  16. PROPOFOL 10 MG/ML INJECTION [Concomitant]
     Dates: start: 20200516
  17. MEROPENEM 1 GM INJECTION [Concomitant]
     Dates: start: 20200517, end: 20200520
  18. VANCOMYCIN 1 GM INJECTION [Concomitant]
     Dates: start: 20200518, end: 20200518

REACTIONS (2)
  - Therapy cessation [None]
  - Blood creatine phosphokinase increased [None]

NARRATIVE: CASE EVENT DATE: 20200523
